FAERS Safety Report 14591912 (Version 1)
Quarter: 2018Q1

REPORT INFORMATION
  Report Type: Spontaneous
  Country: IT (occurrence: IT)
  Receive Date: 20180302
  Receipt Date: 20180302
  Transmission Date: 20180509
  Serious: Yes (Other)
  Sender: FDA-Public Use
  Company Number: IT-PFIZER INC-2018085308

PATIENT
  Age: 46 Year
  Sex: Male

DRUGS (4)
  1. TRIATEC [Suspect]
     Active Substance: RAMIPRIL
     Dosage: 5 MG, TOTAL
     Route: 048
     Dates: start: 20180209, end: 20180209
  2. LOBIVON [Suspect]
     Active Substance: NEBIVOLOL HYDROCHLORIDE
     Dosage: (1( UNITS UNKNOWN) TOTALLY)
     Route: 048
     Dates: start: 20180209, end: 20180209
  3. ENTUMIN [Suspect]
     Active Substance: CLOTHIAPINE
     Dosage: 10 ML, TOTAL
     Route: 048
     Dates: start: 20180209, end: 20180209
  4. HALDOL [Suspect]
     Active Substance: HALOPERIDOL
     Dosage: 1 MG, TOTAL
     Route: 048
     Dates: start: 20180209, end: 20180209

REACTIONS (3)
  - Intentional product misuse [Unknown]
  - Intentional self-injury [Unknown]
  - Sluggishness [Unknown]

NARRATIVE: CASE EVENT DATE: 20180209
